FAERS Safety Report 6294290-0 (Version None)
Quarter: 2009Q3

REPORT INFORMATION
  Report Type: 
  Country: None (occurrence: None)
  Receive Date: 20090803
  Receipt Date: 20090507
  Transmission Date: 20100115
  Serious: No
  Sender: FDA-Public Use
  Company Number: A0783921A

PATIENT
  Age: 66 Year
  Sex: Male

DRUGS (2)
  1. NICOTINE POLACRILEX [Suspect]
     Indication: SMOKING CESSATION THERAPY
     Route: 002
     Dates: start: 20090301, end: 20090401
  2. NICOTINE POLACRILEX [Suspect]
     Route: 002
     Dates: start: 20090401

REACTIONS (1)
  - DRUG INEFFECTIVE [None]
